FAERS Safety Report 17997805 (Version 2)
Quarter: 2022Q4

REPORT INFORMATION
  Report Type: Report from Study
  Country: US (occurrence: US)
  Receive Date: 20200709
  Receipt Date: 20221121
  Transmission Date: 20230113
  Serious: No
  Sender: FDA-Public Use
  Company Number: US-SHIRE-US202021873

PATIENT
  Sex: Male

DRUGS (1)
  1. IDURSULFASE [Suspect]
     Active Substance: IDURSULFASE
     Indication: Mucopolysaccharidosis II
     Dosage: UNK
     Route: 042
     Dates: start: 20170503

REACTIONS (2)
  - Antibody test abnormal [Unknown]
  - Product dose omission issue [Unknown]
